FAERS Safety Report 20000906 (Version 4)
Quarter: 2022Q2

REPORT INFORMATION
  Report Type: Spontaneous
  Country: JP (occurrence: JP)
  Receive Date: 20211027
  Receipt Date: 20220413
  Transmission Date: 20220721
  Serious: Yes (Disabling)
  Sender: FDA-Public Use
  Company Number: JP-NOVARTISPH-NVSJ2021JP017247

PATIENT
  Age: 20 Year
  Sex: Male
  Weight: 43.8 kg

DRUGS (24)
  1. AFINITOR [Suspect]
     Active Substance: EVEROLIMUS
     Indication: Neuroendocrine tumour
     Dosage: 10 MG, QD
     Route: 048
     Dates: start: 20200410, end: 20211004
  2. AFINITOR [Suspect]
     Active Substance: EVEROLIMUS
     Dosage: 5 MG, QD
     Route: 048
     Dates: start: 20220104
  3. DENOSUMAB [Suspect]
     Active Substance: DENOSUMAB
     Indication: Product used for unknown indication
     Dosage: UNK
     Route: 065
     Dates: start: 20200602
  4. DIETARY SUPPLEMENT\PROBIOTICS [Concomitant]
     Active Substance: DIETARY SUPPLEMENT\PROBIOTICS
     Indication: Diarrhoea
     Dosage: UNK
     Route: 048
  5. LOPRAMIDE [Concomitant]
     Indication: Diarrhoea
     Dosage: UNK
     Route: 048
  6. GLYCOSAMINOGLYCANS [Concomitant]
     Active Substance: GLYCOSAMINOGLYCANS
     Indication: Dry skin
     Dosage: UNK
     Route: 062
  7. DEXAMETHASONE [Concomitant]
     Active Substance: DEXAMETHASONE
     Indication: Stomatitis
     Dosage: UNK
     Route: 065
  8. DEXAMETHASONE [Concomitant]
     Active Substance: DEXAMETHASONE
     Indication: Nausea
     Dosage: 5 ML, TID
     Route: 048
     Dates: start: 20200428, end: 20211014
  9. DEXAMETHASONE [Concomitant]
     Active Substance: DEXAMETHASONE
     Indication: Vomiting
  10. AZUNOL [Concomitant]
     Indication: Diarrhoea
     Dosage: UNK, PRN
     Route: 062
     Dates: start: 20200507, end: 20200525
  11. BIO-THREE [Concomitant]
     Active Substance: HERBALS
     Indication: Diarrhoea
     Dosage: UNK
     Route: 065
  12. CALCIUM CARBONATE\CHOLECALCIFEROL\MAGNESIUM CARBONATE [Concomitant]
     Active Substance: CALCIUM CARBONATE\CHOLECALCIFEROL\MAGNESIUM CARBONATE
     Indication: Metastases to bone
     Dosage: 2 DOSAGE FORM, QD
     Route: 048
     Dates: start: 20200602
  13. FEXOFENADINE HYDROCHLORIDE [Concomitant]
     Active Substance: FEXOFENADINE HYDROCHLORIDE
     Indication: Dermatitis allergic
     Dosage: 60 MG, BID
     Route: 048
     Dates: start: 20200602, end: 20211101
  14. RINDERON VG [Concomitant]
     Active Substance: BETAMETHASONE VALERATE\GENTAMICIN SULFATE
     Indication: Dermatitis
     Dosage: 1 TO SEVERAL TIMES, APPROPRIATE AMOUNT
     Route: 062
     Dates: start: 20200602, end: 20200713
  15. SIMVASTATIN [Concomitant]
     Active Substance: SIMVASTATIN
     Indication: Hyperlipidaemia
     Dosage: 5 MG, QD
     Route: 048
     Dates: start: 20200618, end: 20211026
  16. GLYCOSAMINOGLYCANS [Concomitant]
     Active Substance: GLYCOSAMINOGLYCANS
     Indication: Dry skin
     Dosage: 1 TO SEVERAL TIMES, APPROPRIATE AMOUNT
     Route: 062
     Dates: start: 20200630, end: 20200713
  17. HEPARINOID [Concomitant]
     Indication: Dry skin
     Dosage: 1 TO SEVERAL TIMES, APPROPRIATE AMOUNT
     Route: 062
     Dates: start: 20200630, end: 20201109
  18. MINOCYCLINE HYDROCHLORIDE [Concomitant]
     Active Substance: MINOCYCLINE HYDROCHLORIDE
     Indication: Dermatitis
     Dosage: 100 MG, BID
     Route: 048
     Dates: start: 20200929, end: 20211101
  19. PENTOSAN POLYSULFATE SODIUM [Concomitant]
     Active Substance: PENTOSAN POLYSULFATE SODIUM
     Indication: Dermatitis
     Dosage: SEVERAL TIMES, APPROPRIATE AMOUNT
     Route: 062
     Dates: start: 20200929, end: 20210920
  20. LOCOID [Concomitant]
     Active Substance: HYDROCORTISONE BUTYRATE
     Indication: Dermatitis
     Dosage: APPROPRIATE AMOUNT, BID
     Route: 062
     Dates: start: 20200929, end: 20201109
  21. DEXAMETHASONE DIPROPIONATE [Concomitant]
     Active Substance: DEXAMETHASONE DIPROPIONATE
     Indication: Dermatitis
     Dosage: 1 TO SEVERAL TIMES, APPROPRIATE AMOUNT
     Route: 062
     Dates: start: 20200929, end: 20201019
  22. LOXOPROFEN SODIUM [Concomitant]
     Active Substance: LOXOPROFEN SODIUM
     Indication: Myalgia
     Dosage: 100 MG, QD
     Route: 062
     Dates: start: 20201222, end: 20210201
  23. LOXOPROFEN [Concomitant]
     Active Substance: LOXOPROFEN
     Indication: Analgesic therapy
     Dosage: 60 MG, BID
     Route: 048
     Dates: start: 20210413, end: 20210607
  24. HEPARINOID [Concomitant]
     Indication: Dermatitis
     Dosage: APPROPRIATE AMOUNT 2 - 3 TIMES
     Route: 062
     Dates: start: 20211005

REACTIONS (35)
  - Thyroiditis subacute [Recovered/Resolved with Sequelae]
  - Hypothyroidism [Recovered/Resolved with Sequelae]
  - Diarrhoea [Recovered/Resolved]
  - Dermatitis [Recovering/Resolving]
  - Hypoproteinaemia [Not Recovered/Not Resolved]
  - Hypoalbuminaemia [Not Recovered/Not Resolved]
  - Blood bilirubin abnormal [Recovered/Resolved]
  - Blood urea decreased [Recovered/Resolved]
  - Blood alkaline phosphatase decreased [Not Recovered/Not Resolved]
  - Blood lactate dehydrogenase increased [Recovered/Resolved]
  - Aspartate aminotransferase increased [Recovered/Resolved]
  - Alanine aminotransferase increased [Recovered/Resolved]
  - Blood cholinesterase increased [Recovering/Resolving]
  - Hyperamylasaemia [Recovered/Resolved]
  - Hyperlipidaemia [Recovered/Resolved]
  - Hypokalaemia [Recovered/Resolved]
  - Hypocalcaemia [Recovered/Resolved]
  - Hypophosphataemia [Recovered/Resolved]
  - Inflammation [Recovered/Resolved]
  - Ketonuria [Recovered/Resolved]
  - Hyperglycaemia [Recovered/Resolved]
  - Leukopenia [Recovered/Resolved]
  - Hypochromic anaemia [Recovered/Resolved]
  - Polycythaemia [Recovered/Resolved]
  - Neutrophilia [Recovered/Resolved]
  - Lymphocyte count decreased [Not Recovered/Not Resolved]
  - Neutrophil count decreased [Recovered/Resolved]
  - Hypogammaglobulinaemia [Not Recovered/Not Resolved]
  - Gastrin-releasing peptide precursor [Recovered/Resolved]
  - Interstitial lung disease [Recovered/Resolved]
  - Hypoglycaemia [Recovered/Resolved]
  - Stomatitis [Recovered/Resolved]
  - Gynaecomastia [Recovering/Resolving]
  - Concomitant disease aggravated [Recovered/Resolved]
  - Myalgia [Recovered/Resolved]

NARRATIVE: CASE EVENT DATE: 20200420
